FAERS Safety Report 12579899 (Version 1)
Quarter: 2016Q3

REPORT INFORMATION
  Report Type: Spontaneous
  Country: US (occurrence: US)
  Receive Date: 20160721
  Receipt Date: 20160721
  Transmission Date: 20161109
  Serious: No
  Sender: FDA-Public Use
  Company Number: US-ACTELION-A-NJ2016-139025

PATIENT
  Age: 49 Year
  Sex: Female

DRUGS (13)
  1. VENTAVIS [Suspect]
     Active Substance: ILOPROST
     Indication: PULMONARY HYPERTENSION
     Route: 055
  2. COENZYME Q10 [Concomitant]
     Active Substance: UBIDECARENONE
  3. FISH OIL [Concomitant]
     Active Substance: FISH OIL
  4. AMBRISENTAN [Suspect]
     Active Substance: AMBRISENTAN
     Indication: PULMONARY HYPERTENSION
     Dosage: 10 MG, QD
     Route: 065
     Dates: start: 20130312
  5. SILDENAFIL. [Suspect]
     Active Substance: SILDENAFIL
     Dosage: 60 MG, QD
     Route: 065
  6. VITAMIN C [Concomitant]
     Active Substance: ASCORBIC ACID
  7. SILDENAFIL. [Suspect]
     Active Substance: SILDENAFIL
     Dosage: 40 MG, TID
     Route: 065
  8. VITAMIN D [Concomitant]
     Active Substance: CHOLECALCIFEROL
  9. SILDENAFIL. [Suspect]
     Active Substance: SILDENAFIL
     Dosage: 20 MG, TID
     Route: 065
  10. IRON [Concomitant]
     Active Substance: IRON
  11. MULTIVITAMIN [Concomitant]
     Active Substance: VITAMINS
  12. SILDENAFIL. [Suspect]
     Active Substance: SILDENAFIL
     Indication: PRODUCT USED FOR UNKNOWN INDICATION
     Dosage: 40 MG, TID
     Route: 065
     Dates: start: 201512
  13. COUMADIN [Concomitant]
     Active Substance: WARFARIN SODIUM

REACTIONS (3)
  - Treatment noncompliance [Unknown]
  - Migraine [Unknown]
  - Headache [Unknown]

NARRATIVE: CASE EVENT DATE: 20151216
